FAERS Safety Report 7688326-X (Version None)
Quarter: 2011Q3

REPORT INFORMATION
  Report Type: 
  Country: None (occurrence: None)
  Receive Date: 20110817
  Receipt Date: 20110811
  Transmission Date: 20111222
  Serious: Yes (Hospitalization, Other)
  Sender: FDA-Public Use
  Company Number: FR-PFIZER INC-2011184699

PATIENT
  Age: 78 Year
  Sex: Male

DRUGS (3)
  1. ALDACTONE [Suspect]
     Indication: CIRRHOSIS ALCOHOLIC
     Dosage: 100 MG, DAILY
     Route: 048
     Dates: start: 20040101, end: 20110608
  2. IKOREL [Suspect]
     Indication: ISCHAEMIC CARDIOMYOPATHY
     Dosage: 20 MG, 2X/DAY
     Route: 048
     Dates: start: 20100101, end: 20110608
  3. NORFLOXACIN [Suspect]
     Indication: PROPHYLAXIS
     Dosage: 400 MG, DAILY
     Route: 048
     Dates: start: 20101201

REACTIONS (2)
  - HYPERGLYCAEMIA [None]
  - HYPONATRAEMIA [None]
